FAERS Safety Report 9373983 (Version 1)
Quarter: 2013Q2

REPORT INFORMATION
  Report Type: Spontaneous
  Country: US (occurrence: None)
  Receive Date: 20130627
  Receipt Date: 20130627
  Transmission Date: 20140414
  Serious: No
  Sender: FDA-Public Use
  Company Number: None

PATIENT
  Age: 62 Year
  Sex: Male
  Weight: 91.17 kg

DRUGS (1)
  1. ROXICET [Suspect]
     Indication: CANCER PAIN
     Dosage: S1325 96. PRN PO
     Route: 048
     Dates: start: 20080403, end: 20080406

REACTIONS (1)
  - Pruritus [None]
